FAERS Safety Report 4329196-7 (Version None)
Quarter: 2004Q1

REPORT INFORMATION
  Report Type: 
  Country: None (occurrence: None)
  Receive Date: 20040329
  Receipt Date: 20031224
  Transmission Date: 20041129
  Serious: No
  Sender: FDA-Public Use
  Company Number: 03P-163-0245865-00

PATIENT
  Age: 72 Year
  Sex: Male

DRUGS (10)
  1. HUMIRA [Suspect]
     Indication: RHEUMATOID ARTHRITIS
     Dosage: 40 MG, 1IN 2 WK, SUBCUTANEOUS
     Route: 058
     Dates: start: 20030401
  2. NICOTINIC ACID [Concomitant]
  3. ASPIRIN [Concomitant]
  4. VICODIN [Concomitant]
  5. FEXOFENADINE HYDROCHLORIDE [Concomitant]
  6. METOPROLOL TARTRATE [Concomitant]
  7. DIGOXIN [Concomitant]
  8. PREDNISONE [Concomitant]
  9. FUROSEMIDE [Concomitant]
  10. POTASSIUM [Concomitant]

REACTIONS (1)
  - INJECTION SITE HAEMORRHAGE [None]
